FAERS Safety Report 18406417 (Version 1)
Quarter: 2020Q4

REPORT INFORMATION
  Report Type: Spontaneous
  Country: US (occurrence: US)
  Receive Date: 20201020
  Receipt Date: 20201020
  Transmission Date: 20210114
  Serious: Yes (Other)
  Sender: FDA-Public Use
  Company Number: US-BRISTOL-MYERS SQUIBB COMPANY-BMS-2020-085277

PATIENT
  Sex: Female

DRUGS (2)
  1. YERVOY [Suspect]
     Active Substance: IPILIMUMAB
     Indication: NEUROENDOCRINE CARCINOMA
     Dosage: UNK
     Route: 065
     Dates: start: 2020
  2. OPDIVO [Suspect]
     Active Substance: NIVOLUMAB
     Indication: NEUROENDOCRINE CARCINOMA
     Dosage: UNK
     Route: 065
     Dates: start: 2020

REACTIONS (2)
  - Duodenal ulcer perforation [Unknown]
  - Intentional product use issue [Unknown]
